FAERS Safety Report 6565405-1 (Version None)
Quarter: 2010Q1

REPORT INFORMATION
  Report Type: 
  Country: None (occurrence: None)
  Receive Date: 20100201
  Receipt Date: 20100114
  Transmission Date: 20100710
  Serious: Yes (Death, Life-Threatening, Hospitalization, Disabling, Other)
  Sender: FDA-Public Use
  Company Number: BR-SANOFI-AVENTIS-2010SA001493

PATIENT
  Sex: Male
  Weight: 90 kg

DRUGS (6)
  1. ELOXATIN [Suspect]
     Indication: COLON CANCER
     Route: 041
     Dates: start: 20090519, end: 20090519
  2. ELOXATIN [Suspect]
     Route: 041
     Dates: start: 20091021, end: 20091021
  3. 5-FU [Concomitant]
     Indication: COLON CANCER
     Route: 041
     Dates: start: 20090519, end: 20090519
  4. 5-FU [Concomitant]
     Route: 041
     Dates: start: 20091021, end: 20091021
  5. LEUCOVORIN CALCIUM [Concomitant]
     Indication: COLON CANCER
     Route: 041
     Dates: start: 20090519, end: 20090519
  6. LEUCOVORIN CALCIUM [Concomitant]
     Route: 041
     Dates: start: 20091021, end: 20091021

REACTIONS (4)
  - DEATH [None]
  - DIFFUSE ALVEOLAR DAMAGE [None]
  - DYSPNOEA [None]
  - RESPIRATORY ARREST [None]
